FAERS Safety Report 4503772-0 (Version None)
Quarter: 2004Q4

REPORT INFORMATION
  Report Type: 
  Country: None (occurrence: None)
  Receive Date: 20041115
  Receipt Date: 20041101
  Transmission Date: 20050328
  Serious: Yes (Hospitalization)
  Sender: FDA-Public Use
  Company Number: PANC00304003951

PATIENT
  Age: 16 Year
  Sex: Male

DRUGS (8)
  1. SA-001 (PANCREATIN) [Suspect]
     Indication: CYSTIC FIBROSIS PANCREATIC
     Dosage: 2 GRAM(S) TID ORAL
     Route: 048
     Dates: start: 20001114
  2. PANVITAN [Concomitant]
  3. HYMERON KI (PHYTOMENADIONE) [Concomitant]
  4. JUVELA (TOCOPHEROL) [Concomitant]
  5. BISOLVON (BROMHEXINE HYDROCHLORIDE) [Concomitant]
  6. MUCODYNE (CARBOCISTEINE) [Concomitant]
  7. ALFAROL (ALFACALCIDOL) [Concomitant]
  8. HOCHU-EKKI-TO [Concomitant]

REACTIONS (1)
  - PNEUMONIA [None]
